FAERS Safety Report 16174277 (Version 1)
Quarter: 2019Q2

REPORT INFORMATION
  Report Type: Spontaneous
  Country: US (occurrence: US)
  Receive Date: 20190408
  Receipt Date: 20190408
  Transmission Date: 20190711
  Serious: No
  Sender: FDA-Public Use
  Company Number: None

PATIENT
  Age: 25 Year
  Sex: Female

DRUGS (1)
  1. PARAGARD T 380A [Suspect]
     Active Substance: COPPER
     Dates: start: 20150821, end: 20180703

REACTIONS (8)
  - Disorientation [None]
  - Menorrhagia [None]
  - Anaemia [None]
  - Dysmenorrhoea [None]
  - Dizziness [None]
  - Pain [None]
  - Discomfort [None]
  - Hyperhidrosis [None]

NARRATIVE: CASE EVENT DATE: 20150821
